FAERS Safety Report 4552128-3 (Version None)
Quarter: 2005Q1

REPORT INFORMATION
  Report Type: 
  Country: None (occurrence: None)
  Receive Date: 20050112
  Receipt Date: 20041230
  Transmission Date: 20050727
  Serious: Yes (Other)
  Sender: FDA-Public Use
  Company Number: 2004122124

PATIENT
  Sex: Female
  Weight: 74.8435 kg

DRUGS (3)
  1. BENADRYL [Suspect]
     Indication: SINUS CONGESTION
     Dosage: ONE ULTRATAB HS, ORAL
     Route: 048
  2. OMEPRAZOLE [Concomitant]
  3. BUPROPION HYDROCHLORIDE  (BUPROPION HYDROCHLORIDE0 [Concomitant]

REACTIONS (4)
  - BREAST CANCER [None]
  - POSTOPERATIVE INFECTION [None]
  - SKIN GRAFT [None]
  - STAPHYLOCOCCAL INFECTION [None]
